FAERS Safety Report 21684633 (Version 3)
Quarter: 2023Q1

REPORT INFORMATION
  Report Type: Spontaneous
  Country: US (occurrence: US)
  Receive Date: 20221205
  Receipt Date: 20230126
  Transmission Date: 20230418
  Serious: Yes (Death, Hospitalization, Other)
  Sender: FDA-Public Use
  Company Number: US-GW PHARMA-2022-US-037070

PATIENT
  Age: 5 Year

DRUGS (7)
  1. EPIDIOLEX [Suspect]
     Active Substance: CANNABIDIOL
     Indication: Severe myoclonic epilepsy of infancy
     Dosage: 3 MILLILITER (1 ML AM, 2 ML PM)
     Dates: start: 20220913
  2. EPIDIOLEX [Suspect]
     Active Substance: CANNABIDIOL
     Indication: Epilepsy
     Dosage: 300 MILLIGRAM, BID
     Route: 048
     Dates: start: 20211006
  3. EPIDIOLEX [Suspect]
     Active Substance: CANNABIDIOL
     Indication: Seizure
  4. CLOBAZAM [Concomitant]
     Active Substance: CLOBAZAM
     Indication: Product used for unknown indication
  5. FENFLURAMINE [Concomitant]
     Active Substance: FENFLURAMINE
     Indication: Product used for unknown indication
  6. KEPPRA XR [Concomitant]
     Active Substance: LEVETIRACETAM
     Indication: Seizure
     Dosage: 3 MILLILITER, BID
     Route: 048
     Dates: start: 20210707
  7. ONFI [Concomitant]
     Active Substance: CLOBAZAM
     Indication: Seizure
     Dosage: 10 MILLIGRAM, QD, EVERY NIGHT AT BEDTIME
     Route: 048
     Dates: start: 20220322

REACTIONS (4)
  - Sudden unexplained death in epilepsy [Fatal]
  - Seizure [Not Recovered/Not Resolved]
  - Aspiration [Not Recovered/Not Resolved]
  - Vomiting [Not Recovered/Not Resolved]

NARRATIVE: CASE EVENT DATE: 20221201
